FAERS Safety Report 23514373 (Version 1)
Quarter: 2024Q1

REPORT INFORMATION
  Report Type: Spontaneous
  Country: CA (occurrence: CA)
  Receive Date: 20240212
  Receipt Date: 20240212
  Transmission Date: 20240410
  Serious: Yes (Other)
  Sender: FDA-Public Use
  Company Number: CA-ABBVIE-5633533

PATIENT

DRUGS (1)
  1. HUMIRA [Suspect]
     Active Substance: ADALIMUMAB
     Indication: Crohn^s disease
     Route: 058

REACTIONS (7)
  - Diarrhoea [Unknown]
  - Stress [Unknown]
  - Anal abscess [Unknown]
  - Drug effect less than expected [Unknown]
  - Anal fissure [Unknown]
  - Abdominal pain [Unknown]
  - General physical health deterioration [Unknown]
